FAERS Safety Report 7778215 (Version 3)
Quarter: 2014Q1

REPORT INFORMATION
  Report Type: Spontaneous
  Country: US (occurrence: US)
  Receive Date: 20110128
  Receipt Date: 20140127
  Transmission Date: 20141002
  Serious: Yes (Hospitalization, Other)
  Sender: FDA-Public Use
  Company Number: US-BAYER-2010-003198

PATIENT
  Age: 21 Year
  Sex: Female
  Weight: 70 kg

DRUGS (1)
  1. YAZ [Suspect]
     Indication: CONTRACEPTION
     Dosage: UNK UNK, QD
     Dates: start: 200808, end: 200901

REACTIONS (7)
  - Biliary tract disorder [Unknown]
  - Cholecystitis acute [None]
  - Abdominal pain [None]
  - Abdominal pain upper [Unknown]
  - Dyspnoea [Unknown]
  - Food intolerance [Unknown]
  - Dyspepsia [Unknown]
